FAERS Safety Report 4725902-8 (Version None)
Quarter: 2005Q3

REPORT INFORMATION
  Report Type: 
  Country: None (occurrence: None)
  Receive Date: 20050722
  Receipt Date: 20050722
  Transmission Date: 20060218
  Serious: No
  Sender: FDA-Public Use
  Company Number: None

PATIENT
  Age: 49 Year
  Sex: Female
  Weight: 68.0396 kg

DRUGS (1)
  1. BEXTRA [Suspect]
     Indication: JOINT SPRAIN
     Dosage: 1-2 PILLS AS NEEDED
     Dates: start: 20040901, end: 20041201

REACTIONS (6)
  - EYE DISORDER [None]
  - FATIGUE [None]
  - HEADACHE [None]
  - HYPOAESTHESIA [None]
  - OCULAR HYPERAEMIA [None]
  - PAIN OF SKIN [None]
